FAERS Safety Report 22694653 (Version 2)
Quarter: 2025Q4

REPORT INFORMATION
  Report Type: Spontaneous
  Country: US (occurrence: US)
  Receive Date: 20230712
  Receipt Date: 20251224
  Transmission Date: 20260118
  Serious: No
  Sender: PADAGIS
  Company Number: US-PADAGIS-2023PAD00989

PATIENT

DRUGS (2)
  1. IMIQUIMOD [Suspect]
     Active Substance: IMIQUIMOD
     Indication: Anogenital warts
     Dosage: UNK
     Route: 065
  2. SINECATECHINS [Suspect]
     Active Substance: SINECATECHINS
     Indication: Anogenital warts
     Dosage: UNK
     Route: 065

REACTIONS (1)
  - Treatment failure [Unknown]
